FAERS Safety Report 6352127-5 (Version None)
Quarter: 2009Q3

REPORT INFORMATION
  Report Type: 
  Country: None (occurrence: None)
  Receive Date: 20090912
  Receipt Date: 20090622
  Transmission Date: 20100115
  Serious: No
  Sender: FDA-Public Use
  Company Number: US-ABBOTT-07P-163-0430631-00

PATIENT
  Sex: Male
  Weight: 88.984 kg

DRUGS (5)
  1. HUMIRA [Suspect]
     Indication: CROHN'S DISEASE
     Route: 058
     Dates: start: 20071217, end: 20071217
  2. HUMIRA [Suspect]
     Route: 058
     Dates: start: 20071218, end: 20071218
  3. HUMIRA [Suspect]
     Dosage: DAY 15
     Route: 058
     Dates: start: 20071231, end: 20071231
  4. HUMIRA [Suspect]
     Dosage: DAY 29
     Route: 058
  5. HUMIRA [Suspect]
     Route: 058

REACTIONS (2)
  - INCORRECT DOSE ADMINISTERED [None]
  - INJECTION SITE EXTRAVASATION [None]
